FAERS Safety Report 11353231 (Version 1)
Quarter: 2015Q3

REPORT INFORMATION
  Report Type: Spontaneous
  Country: US (occurrence: US)
  Receive Date: 20150807
  Receipt Date: 20150807
  Transmission Date: 20151125
  Serious: No
  Sender: FDA-Public Use
  Company Number: US-JNJFOC-20141116466

PATIENT
  Age: 68 Year
  Sex: Female
  Weight: 58.97 kg

DRUGS (2)
  1. WOMENS ROGAINE [Suspect]
     Active Substance: MINOXIDIL
     Route: 061
  2. WOMENS ROGAINE [Suspect]
     Active Substance: MINOXIDIL
     Indication: HAIR GROWTH ABNORMAL
     Dosage: NORMAL DOSE, 2X DAILY OVER 4 WEEKS
     Route: 061

REACTIONS (5)
  - Metrorrhagia [Recovered/Resolved]
  - Swelling [Unknown]
  - Pain of skin [Unknown]
  - Chest pain [Recovered/Resolved]
  - Hair growth abnormal [Not Recovered/Not Resolved]
